FAERS Safety Report 4668897-8 (Version None)
Quarter: 2005Q2

REPORT INFORMATION
  Report Type: 
  Country: None (occurrence: None)
  Receive Date: 20050523
  Receipt Date: 20041021
  Transmission Date: 20051028
  Serious: Yes (Other)
  Sender: FDA-Public Use
  Company Number: PHBS2004BR13964

PATIENT
  Age: 78 Year
  Sex: Female

DRUGS (9)
  1. SYNTHROID [Concomitant]
     Indication: HYPERTHYROIDISM
     Route: 065
  2. CHEMOTHERAPEUTICS,OTHER [Concomitant]
     Route: 065
  3. CORTICOSTEROIDS [Concomitant]
     Route: 065
  4. DECADRON [Concomitant]
     Route: 065
  5. TAMOXIFEN [Concomitant]
     Route: 065
  6. FEMARA [Concomitant]
     Route: 065
  7. RADIOTHERAPY [Concomitant]
     Route: 065
     Dates: start: 20030310, end: 20030321
  8. FASLODEX [Concomitant]
     Dosage: 250 MG, QMO
     Dates: start: 20030301
  9. ZOMETA [Suspect]
     Indication: METASTASES TO BONE
     Dosage: 4 MG, QMO
     Route: 042
     Dates: start: 20030305, end: 20040901

REACTIONS (4)
  - ASEPTIC NECROSIS BONE [None]
  - BONE TRIMMING [None]
  - PROSTHESIS USER [None]
  - TOOTH EXTRACTION [None]
